FAERS Safety Report 24732221 (Version 1)
Quarter: 2024Q4

REPORT INFORMATION
  Report Type: Other
  Country: US (occurrence: US)
  Receive Date: 20241213
  Receipt Date: 20241213
  Transmission Date: 20250114
  Serious: Yes (Hospitalization, Other)
  Sender: B BRAUN
  Company Number: US-B.Braun Medical Inc.-2167051

PATIENT
  Age: 36 Year
  Sex: Female

DRUGS (6)
  1. DEXTROSE [Suspect]
     Active Substance: DEXTROSE MONOHYDRATE
     Indication: Hyperemesis gravidarum
  2. HYDROCORTISONE [Suspect]
     Active Substance: HYDROCORTISONE
  3. PROPRANOLOL [Concomitant]
     Active Substance: PROPRANOLOL HYDROCHLORIDE
  4. METHIMAZOLE [Concomitant]
     Active Substance: METHIMAZOLE
  5. UNSPECIFIED INGREDIENT [Concomitant]
     Active Substance: UNSPECIFIED INGREDIENT
  6. SODIUM CHLORIDE [Concomitant]
     Active Substance: SODIUM CHLORIDE

REACTIONS (3)
  - Vitamin B1 deficiency [Recovered/Resolved]
  - Maternal exposure during pregnancy [Recovered/Resolved]
  - Wernicke^s encephalopathy [Recovered/Resolved]
